FAERS Safety Report 23384524 (Version 3)
Quarter: 2024Q1

REPORT INFORMATION
  Report Type: Spontaneous
  Country: US (occurrence: US)
  Receive Date: 20240109
  Receipt Date: 20240207
  Transmission Date: 20240410
  Serious: Yes (Other)
  Sender: FDA-Public Use
  Company Number: US-PFIZER INC-PV202300209972

PATIENT
  Age: 72 Year
  Sex: Male
  Weight: 64.853 kg

DRUGS (1)
  1. INLYTA [Suspect]
     Active Substance: AXITINIB
     Dosage: 5 MG

REACTIONS (7)
  - Blood pressure increased [Unknown]
  - Product size issue [Unknown]
  - Product use complaint [Unknown]
  - Decreased appetite [Unknown]
  - Ageusia [Unknown]
  - Stomatitis [Unknown]
  - Weight decreased [Unknown]
